FAERS Safety Report 8209222-5 (Version None)
Quarter: 2012Q1

REPORT INFORMATION
  Report Type: 
  Country: None (occurrence: None)
  Receive Date: 20120314
  Receipt Date: 20120219
  Transmission Date: 20120608
  Serious: Yes (Death, Hospitalization, Other)
  Sender: FDA-Public Use
  Company Number: PHHY2012ES020236

PATIENT
  Age: 78 Year
  Sex: Female

DRUGS (7)
  1. GLIPIZIDE [Concomitant]
     Dosage: 5 MG, UNK
  2. LISINOPRIL [Concomitant]
     Dosage: 20 MG, UNK
  3. METFORMIN HCL [Suspect]
     Indication: TYPE 2 DIABETES MELLITUS
     Dosage: 850 MG, Q8H
     Route: 048
  4. LERCANIDIPINE [Concomitant]
     Dosage: 10 MG, UNK
  5. ACENOCOUMAROL [Concomitant]
  6. HYDROCHLOROTHIAZIDE [Concomitant]
     Dosage: 12.5 MG, UNK
  7. IBUPROFEN [Concomitant]
     Indication: BONE PAIN
     Dosage: 600 MG, Q8H

REACTIONS (10)
  - GENERAL PHYSICAL HEALTH DETERIORATION [None]
  - MENINGITIS PNEUMOCOCCAL [None]
  - VOMITING [None]
  - BLOOD CREATININE INCREASED [None]
  - HYPOTENSION [None]
  - LACTIC ACIDOSIS [None]
  - POOR PERIPHERAL CIRCULATION [None]
  - COMA [None]
  - BLOOD GLUCOSE INCREASED [None]
  - DEPRESSED LEVEL OF CONSCIOUSNESS [None]
